FAERS Safety Report 15283269 (Version 4)
Quarter: 2019Q3

REPORT INFORMATION
  Report Type: Report from Study
  Country: US (occurrence: US)
  Receive Date: 20180816
  Receipt Date: 20190828
  Transmission Date: 20191004
  Serious: Yes (Hospitalization, Other)
  Sender: FDA-Public Use
  Company Number: US-ROCHE-2168292

PATIENT
  Age: 48 Year
  Sex: Female
  Weight: 77.18 kg

DRUGS (5)
  1. DIFLUCAN [Concomitant]
     Active Substance: FLUCONAZOLE
     Indication: FUNGAL INFECTION
  2. OCREVUS [Suspect]
     Active Substance: OCRELIZUMAB
     Indication: SECONDARY PROGRESSIVE MULTIPLE SCLEROSIS
     Dosage: LAST DATE OF TREATMENT WAS: 05/SEP/2018, /JUN/2019 AND 15/AUG/2019?ANTICIPATED DATE OF TREATMENT: /D
     Route: 042
     Dates: start: 20180305
  3. PERTUSSIS VACCINE [Suspect]
     Active Substance: PERTUSSIS VACCINE
     Indication: PRODUCT USED FOR UNKNOWN INDICATION
     Route: 065
     Dates: start: 20180621
  4. TETANUS TOXOID ADSORBED (VACCINE) [Suspect]
     Active Substance: CLOSTRIDIUM TETANI TOXOID ANTIGEN (FORMALDEHYDE INACTIVATED)
     Indication: PRODUCT USED FOR UNKNOWN INDICATION
     Route: 065
     Dates: start: 20180621
  5. OCREVUS [Suspect]
     Active Substance: OCRELIZUMAB
     Indication: RELAPSING MULTIPLE SCLEROSIS
     Route: 042
     Dates: start: 20180205

REACTIONS (9)
  - Pyrexia [Recovered/Resolved]
  - Erythema [Recovered/Resolved]
  - Cellulitis [Recovered/Resolved]
  - Chills [Recovered/Resolved]
  - Off label use [Unknown]
  - Sepsis [Recovered/Resolved]
  - Feeling hot [Recovered/Resolved]
  - Intentional product misuse [Unknown]
  - Peripheral swelling [Recovered/Resolved]

NARRATIVE: CASE EVENT DATE: 201806
